FAERS Safety Report 19052038 (Version 2)
Quarter: 2022Q2

REPORT INFORMATION
  Report Type: Spontaneous
  Country: US (occurrence: US)
  Receive Date: 20210324
  Receipt Date: 20220502
  Transmission Date: 20220721
  Serious: Yes (Disabling)
  Sender: FDA-Public Use
  Company Number: US-SA-SAC20210323001005

PATIENT
  Age: 70 Year
  Sex: Female

DRUGS (1)
  1. DUPIXENT [Suspect]
     Active Substance: DUPILUMAB
     Indication: Asthma
     Dosage: 300 MG, QOW
     Route: 058
     Dates: start: 20200315

REACTIONS (7)
  - Loss of personal independence in daily activities [Unknown]
  - Cough [Unknown]
  - Middle insomnia [Unknown]
  - Rash erythematous [Unknown]
  - Nerve compression [Unknown]
  - Musculoskeletal disorder [Unknown]
  - Asthma [Unknown]
